FAERS Safety Report 25614323 (Version 1)
Quarter: 2025Q3

REPORT INFORMATION
  Report Type: Spontaneous
  Country: US (occurrence: US)
  Receive Date: 20250728
  Receipt Date: 20250728
  Transmission Date: 20251020
  Serious: No
  Sender: AMGEN
  Company Number: US-AMGEN-USASP2025146365

PATIENT
  Sex: Female

DRUGS (3)
  1. PROLIA [Suspect]
     Active Substance: DENOSUMAB
     Indication: Osteoporosis postmenopausal
     Route: 065
     Dates: start: 202506
  2. EVENITY [Suspect]
     Active Substance: ROMOSOZUMAB-AQQG
     Indication: Product used for unknown indication
     Route: 065
  3. EVENITY [Suspect]
     Active Substance: ROMOSOZUMAB-AQQG
     Route: 065
     Dates: start: 2025

REACTIONS (2)
  - Arthralgia [Unknown]
  - Wrong product administered [Unknown]

NARRATIVE: CASE EVENT DATE: 20250101
